FAERS Safety Report 9468518 (Version 2)
Quarter: 2013Q3

REPORT INFORMATION
  Report Type: Spontaneous
  Country: DE (occurrence: DE)
  Receive Date: 20130821
  Receipt Date: 20130821
  Transmission Date: 20140515
  Serious: Yes (Life-Threatening, Hospitalization, Other)
  Sender: FDA-Public Use
  Company Number: DE-BAYER-2013-096906

PATIENT
  Age: 35 Year
  Sex: Female

DRUGS (1)
  1. MIRENA [Suspect]
     Dosage: 20 MCG/24HR, CONT
     Route: 015
     Dates: start: 20130721, end: 20130801

REACTIONS (6)
  - Abdominal pain lower [Recovered/Resolved]
  - Menorrhagia [Recovered/Resolved]
  - Cardiovascular disorder [Recovered/Resolved]
  - Haemoglobin decreased [Recovered/Resolved]
  - Haemorrhagic anaemia [Recovered/Resolved]
  - Faecaloma [Recovered/Resolved]
